FAERS Safety Report 26084770 (Version 2)
Quarter: 2025Q4

REPORT INFORMATION
  Report Type: Spontaneous
  Country: EU (occurrence: EU)
  Receive Date: 20251124
  Receipt Date: 20251204
  Transmission Date: 20260117
  Serious: Yes (Other)
  Sender: MERCK SHARP & DOHME LLC
  Company Number: EU-009507513-2351112

PATIENT
  Age: 63 Year
  Sex: Female

DRUGS (5)
  1. PEMBROLIZUMAB [Suspect]
     Active Substance: PEMBROLIZUMAB
     Indication: Adrenocortical carcinoma
     Dates: start: 20241211
  2. LYSODREN [Suspect]
     Active Substance: MITOTANE
     Indication: Adrenal gland cancer
     Dosage: UNK
     Route: 048
     Dates: start: 202407
  3. ETOPOSIDE [Concomitant]
     Active Substance: ETOPOSIDE
     Indication: Adrenal gland cancer
     Dates: start: 202407
  4. DOXORUBICIN [Concomitant]
     Active Substance: DOXORUBICIN
     Indication: Adrenal gland cancer
     Dates: start: 202407
  5. CISPLATIN [Concomitant]
     Active Substance: CISPLATIN
     Indication: Adrenal gland cancer
     Dates: start: 202407

REACTIONS (5)
  - Mineralocorticoid deficiency [Recovered/Resolved]
  - Autoimmune hepatitis [Unknown]
  - Hyponatraemia [Recovered/Resolved]
  - Addison^s disease [Recovered/Resolved]
  - Tumour necrosis [Unknown]

NARRATIVE: CASE EVENT DATE: 20240101
